FAERS Safety Report 4784142-7 (Version None)
Quarter: 2005Q3

REPORT INFORMATION
  Report Type: 
  Country: None (occurrence: None)
  Receive Date: 20050930
  Receipt Date: 20050720
  Transmission Date: 20060218
  Serious: No
  Sender: FDA-Public Use
  Company Number: US-GLAXOSMITHKLINE-A0567215A

PATIENT
  Age: 80 Year
  Sex: Female

DRUGS (1)
  1. FLOVENT [Suspect]
     Dosage: 110MCG UNKNOWN
     Route: 055

REACTIONS (1)
  - DRUG INEFFECTIVE [None]
